FAERS Safety Report 25564112 (Version 4)
Quarter: 2025Q4

REPORT INFORMATION
  Report Type: Report from Study
  Country: US (occurrence: US)
  Receive Date: 20250716
  Receipt Date: 20251216
  Transmission Date: 20260118
  Serious: Yes (Hospitalization, Other)
  Sender: ABBVIE
  Company Number: US-ABBVIE-6368934

PATIENT
  Age: 58 Year
  Sex: Male

DRUGS (6)
  1. SKYRIZI [Suspect]
     Active Substance: RISANKIZUMAB-RZAA
     Indication: Crohn^s disease
     Dosage: WEEK-12?STRENGTH- 360MG/ML
     Route: 058
     Dates: start: 20250522, end: 20250522
  2. SKYRIZI [Suspect]
     Active Substance: RISANKIZUMAB-RZAA
     Dosage: STRENGTH- 360MG/ML
     Route: 058
     Dates: start: 20250925, end: 20250925
  3. SKYRIZI [Suspect]
     Active Substance: RISANKIZUMAB-RZAA
     Dosage: STRENGTH- 360MG/ML
     Route: 058
     Dates: start: 20251104
  4. SKYRIZI [Suspect]
     Active Substance: RISANKIZUMAB-RZAA
     Route: 058
  5. SKYRIZI [Suspect]
     Active Substance: RISANKIZUMAB-RZAA
     Indication: Crohn^s disease
     Dosage: TIME INTERVAL: TOTAL: WEEK-0
     Route: 042
     Dates: start: 202502, end: 202502
  6. SKYRIZI [Suspect]
     Active Substance: RISANKIZUMAB-RZAA
     Indication: Crohn^s disease
     Dosage: TIME INTERVAL: TOTAL: WEEK-4, WEEK 8 (DID NOT RECEIVE)
     Route: 042
     Dates: start: 202503, end: 202503

REACTIONS (20)
  - Gastrointestinal injury [Unknown]
  - Groin pain [Recovered/Resolved]
  - Insomnia [Unknown]
  - Musculoskeletal pain [Recovered/Resolved]
  - Product storage error [Not Recovered/Not Resolved]
  - Abdominal distension [Unknown]
  - Device issue [Not Recovered/Not Resolved]
  - Drug ineffective [Unknown]
  - Gastrointestinal sounds abnormal [Recovered/Resolved]
  - Diarrhoea [Unknown]
  - Ear pain [Recovering/Resolving]
  - Sinus congestion [Recovering/Resolving]
  - Weight increased [Unknown]
  - Fatigue [Unknown]
  - Asthenia [Unknown]
  - Arthralgia [Not Recovered/Not Resolved]
  - Gastrointestinal motility disorder [Not Recovered/Not Resolved]
  - Gastrointestinal sounds abnormal [Not Recovered/Not Resolved]
  - Back pain [Recovered/Resolved]
  - Pain [Recovered/Resolved]

NARRATIVE: CASE EVENT DATE: 20250101
